FAERS Safety Report 17198619 (Version 1)
Quarter: 2019Q4

REPORT INFORMATION
  Report Type: Spontaneous
  Country: FR (occurrence: FR)
  Receive Date: 20191225
  Receipt Date: 20191225
  Transmission Date: 20200122
  Serious: Yes (Hospitalization)
  Sender: FDA-Public Use
  Company Number: FR-TEVA-2019-FR-1155999

PATIENT
  Age: 47 Year
  Sex: Male
  Weight: 116 kg

DRUGS (9)
  1. MICAFUNGIN. [Suspect]
     Active Substance: MICAFUNGIN SODIUM
     Indication: INTERVERTEBRAL DISCITIS
     Dosage: 150 MG
     Route: 041
     Dates: start: 20190808, end: 20190926
  2. SUBUTEX [Concomitant]
     Active Substance: BUPRENORPHINE HYDROCHLORIDE
     Indication: DRUG DEPENDENCE
     Dosage: 8 MG
     Route: 048
  3. SERESTA [Concomitant]
     Active Substance: OXAZEPAM
  4. OFLOXACIN. [Suspect]
     Active Substance: OFLOXACIN
     Indication: INTERVERTEBRAL DISCITIS
     Dosage: 600 MG
     Route: 048
     Dates: start: 20190805, end: 20191103
  5. BACTRIM [Suspect]
     Active Substance: SULFAMETHOXAZOLE\TRIMETHOPRIM
     Indication: INTERVERTEBRAL DISCITIS
     Dosage: 4 DOSAGE FORMS
     Route: 048
     Dates: start: 20190830, end: 20190930
  6. FLUCONAZOLE. [Suspect]
     Active Substance: FLUCONAZOLE
     Indication: INTERVERTEBRAL DISCITIS
     Dosage: 800 MG
     Route: 041
     Dates: start: 20190926, end: 20191103
  7. KARDEGIC [Concomitant]
     Active Substance: ASPIRIN DL-LYSINE
  8. LINEZOLID. [Suspect]
     Active Substance: LINEZOLID
     Indication: INTERVERTEBRAL DISCITIS
     Dosage: 1200 MG
     Dates: start: 20190930, end: 20191103
  9. CEFOTAXIME BASE [Suspect]
     Active Substance: CEFOTAXIME SODIUM
     Indication: INTERVERTEBRAL DISCITIS
     Route: 041
     Dates: start: 20190805, end: 20190830

REACTIONS (1)
  - Acute kidney injury [Recovering/Resolving]

NARRATIVE: CASE EVENT DATE: 20190930
